FAERS Safety Report 4847024-8 (Version None)
Quarter: 2005Q4

REPORT INFORMATION
  Report Type: 
  Country: None (occurrence: None)
  Receive Date: 20051205
  Receipt Date: 20051122
  Transmission Date: 20060501
  Serious: Yes (Death, Hospitalization, Other)
  Sender: FDA-Public Use
  Company Number: 2005107321

PATIENT
  Sex: Male
  Weight: 83.9154 kg

DRUGS (4)
  1. NEURONTIN [Suspect]
     Indication: BIPOLAR DISORDER
     Dosage: 2400 MG (600 MG, 4 IN 1 D)
     Dates: start: 19990801, end: 20030413
  2. NEURONTIN [Suspect]
     Indication: PAIN
     Dosage: 2400 MG (600 MG, 4 IN 1 D)
     Dates: start: 19990801, end: 20030413
  3. LAMICTAL [Suspect]
     Indication: BIPOLAR DISORDER
     Dosage: 250 MG (2 IN 1 D)
     Dates: end: 20030413
  4. WELLBUTRIN [Concomitant]

REACTIONS (4)
  - ANXIETY [None]
  - COMPLETED SUICIDE [None]
  - DRUG INEFFECTIVE [None]
  - MULTIPLE DRUG OVERDOSE INTENTIONAL [None]
